FAERS Safety Report 7267784-9 (Version None)
Quarter: 2011Q1

REPORT INFORMATION
  Report Type: 
  Country: None (occurrence: None)
  Receive Date: 20110201
  Receipt Date: 20110125
  Transmission Date: 20110831
  Serious: Yes (Death, Hospitalization)
  Sender: FDA-Public Use
  Company Number: A0888178A

PATIENT
  Age: 46 Year
  Sex: Male

DRUGS (11)
  1. STUDY MEDICATION [Suspect]
     Route: 065
  2. RIBAVIRIN [Suspect]
     Indication: HEPATITIS C
     Route: 065
     Dates: start: 20030101
  3. METHADONE [Concomitant]
  4. BUPROPION HYDROCHLORIDE [Suspect]
     Route: 048
  5. NEUPOGEN [Concomitant]
  6. EPOGEN [Concomitant]
  7. PROCRIT [Suspect]
     Route: 065
  8. GABAPENTIN [Concomitant]
  9. PEGASYS [Suspect]
     Route: 065
     Dates: start: 20030101
  10. REBETRON [Concomitant]
  11. INTRON A [Concomitant]

REACTIONS (4)
  - LARGE INTESTINE PERFORATION [None]
  - INTESTINAL ISCHAEMIA [None]
  - PERITONEAL ADHESIONS [None]
  - PERITONITIS [None]
